FAERS Safety Report 19512257 (Version 1)
Quarter: 2021Q3

REPORT INFORMATION
  Report Type: Other
  Country: JP (occurrence: JP)
  Receive Date: 20210709
  Receipt Date: 20210709
  Transmission Date: 20211014
  Serious: Yes (Other)
  Sender: FDA-Public Use
  Company Number: JP-ROCHE-2863920

PATIENT

DRUGS (1)
  1. BEVACIZUMAB. [Suspect]
     Active Substance: BEVACIZUMAB
     Indication: OVARIAN CLEAR CELL CARCINOMA
     Route: 065

REACTIONS (5)
  - Anal haemorrhage [Unknown]
  - Epistaxis [Unknown]
  - Hypertension [Unknown]
  - Proteinuria [Unknown]
  - Large intestinal obstruction [Unknown]
